FAERS Safety Report 14485154 (Version 4)
Quarter: 2018Q1

REPORT INFORMATION
  Report Type: Spontaneous
  Country: US (occurrence: US)
  Receive Date: 20180205
  Receipt Date: 20180307
  Transmission Date: 20180509
  Serious: No
  Sender: FDA-Public Use
  Company Number: US-PFIZER INC-2018044743

PATIENT
  Sex: Female

DRUGS (2)
  1. METHYLPREDNISOLONE. [Suspect]
     Active Substance: METHYLPREDNISOLONE
     Indication: RASH
     Dosage: TOOK TWO PILLS WITH FOOD AT BREAKFAST, ONE AT LUNCH + DINNER
     Dates: start: 20180129, end: 20180129
  2. METHYLPREDNISOLONE. [Suspect]
     Active Substance: METHYLPREDNISOLONE
     Indication: URTICARIA

REACTIONS (9)
  - Temporomandibular joint syndrome [Recovered/Resolved]
  - Circumstance or information capable of leading to medication error [Unknown]
  - Headache [Recovered/Resolved]
  - Back pain [Recovered/Resolved]
  - Pain in extremity [Recovered/Resolved]
  - Insomnia [Recovered/Resolved]
  - Pain in jaw [Recovered/Resolved]
  - Abdominal pain upper [Recovered/Resolved]
  - Ear pain [Recovered/Resolved]

NARRATIVE: CASE EVENT DATE: 2018
